FAERS Safety Report 6305709-0 (Version None)
Quarter: 2009Q3

REPORT INFORMATION
  Report Type: 
  Country: None (occurrence: None)
  Receive Date: 20090812
  Receipt Date: 20070511
  Transmission Date: 20100115
  Serious: Yes (Other)
  Sender: FDA-Public Use
  Company Number: US-ASTRAZENECA-2006UW08037

PATIENT
  Age: 37 Year
  Sex: Female
  Weight: 106.6 kg

DRUGS (24)
  1. SEROQUEL [Suspect]
     Indication: DEPRESSION
     Dosage: 200 MG TO 300 MG
     Route: 048
     Dates: start: 20031101
  2. SEROQUEL [Suspect]
     Indication: SCHIZOPHRENIA
     Dosage: 200 MG TO 300 MG
     Route: 048
     Dates: start: 20031101
  3. SEROQUEL [Suspect]
     Dosage: 25 MG-300 MG
     Route: 048
     Dates: start: 20040820
  4. SEROQUEL [Suspect]
     Dosage: 25 MG-300 MG
     Route: 048
     Dates: start: 20040820
  5. TYLENOL (CAPLET) [Concomitant]
     Indication: PAIN
     Dosage: 650 MG EVERY 4-6 HOURS
     Route: 048
     Dates: start: 20040923
  6. TYLENOL (CAPLET) [Concomitant]
     Indication: PYREXIA
     Dosage: 650 MG EVERY 4-6 HOURS
     Route: 048
     Dates: start: 20040923
  7. RESTORIL [Concomitant]
     Indication: INSOMNIA
     Route: 048
     Dates: start: 20040923
  8. PROTONIX [Concomitant]
     Route: 048
     Dates: start: 20040817
  9. GLUCOPHAGE [Concomitant]
     Indication: DIABETES MELLITUS
     Dosage: 500-2000 MG
     Dates: start: 20060103
  10. CELEXA [Concomitant]
     Route: 048
     Dates: start: 20040712
  11. WELLBUTRIN [Concomitant]
     Dates: start: 20051020
  12. LOTREL [Concomitant]
     Dosage: 10/20 DAILY
     Dates: start: 20051020
  13. PREVACID [Concomitant]
     Dosage: 30 AT BEDTIME
     Dates: start: 20051020
  14. CARDIZEM CD [Concomitant]
     Route: 048
     Dates: start: 20040820
  15. ZANTAC [Concomitant]
     Dates: start: 20051020
  16. PERCOCET [Concomitant]
     Indication: BACK PAIN
     Dosage: ONE EVERY 4-6 HOUR
     Dates: start: 20051020
  17. FLEXERIL [Concomitant]
     Dosage: EVERY SIX HOUR
     Dates: start: 20051107
  18. LASIX [Concomitant]
     Dates: start: 20061005
  19. IBUPROFEN [Concomitant]
     Dosage: 800 THREE TIMES A DAY
     Dates: start: 20061005
  20. ACYCLOVIR [Concomitant]
     Dates: start: 20040817
  21. GLUCOTROL [Concomitant]
     Indication: DIABETES MELLITUS
     Dates: start: 20060103
  22. ALBUTEROL [Concomitant]
     Dosage: TWO PUFFS EVERY SIX HOUR
     Dates: start: 20061005
  23. BENADRYL [Concomitant]
     Dosage: 50-100 QHS
     Route: 048
     Dates: start: 19980219
  24. BECLOMETHASONE DIPROPIONATE [Concomitant]
     Dates: start: 20040820

REACTIONS (6)
  - DIABETES MELLITUS [None]
  - DIABETES MELLITUS INADEQUATE CONTROL [None]
  - DIABETIC NEUROPATHY [None]
  - HIV TEST POSITIVE [None]
  - OBESITY [None]
  - TYPE 2 DIABETES MELLITUS [None]
